FAERS Safety Report 7542154-4 (Version None)
Quarter: 2011Q2

REPORT INFORMATION
  Report Type: 
  Country: None (occurrence: None)
  Receive Date: 20110524
  Receipt Date: 20110309
  Transmission Date: 20111010
  Serious: No
  Sender: FDA-Public Use
  Company Number: 028993

PATIENT
  Sex: Female
  Weight: 71 kg

DRUGS (14)
  1. POTASSIUM CHLORIDE [Concomitant]
  2. VITAMIN D [Concomitant]
  3. MIACALCIN [Concomitant]
  4. VERPAMIL HCL [Concomitant]
  5. ATENOLOL [Concomitant]
  6. FISH OIL [Concomitant]
  7. PREDNISONE [Concomitant]
  8. LISINOPRIL [Concomitant]
  9. VITAMIN B12 [Concomitant]
  10. CIMZIA [Suspect]
     Indication: RHEUMATOID ARTHRITIS
     Dosage: (400 MG, FINISHED INDUCTION DOSES, TO START MONTHLY DOSES ON 13-MAR-2011 SUBCUTANEOUS)
     Route: 058
  11. METHOTREXATE [Concomitant]
  12. FOLIC ACID [Concomitant]
  13. VICODIN [Concomitant]
  14. LASIX [Concomitant]

REACTIONS (4)
  - CONSTIPATION [None]
  - DRUG INEFFECTIVE [None]
  - ARTHRALGIA [None]
  - INSOMNIA [None]
